FAERS Safety Report 17531166 (Version 1)
Quarter: 2020Q1

REPORT INFORMATION
  Report Type: Spontaneous
  Country: US (occurrence: US)
  Receive Date: 20200311
  Receipt Date: 20200311
  Transmission Date: 20200409
  Serious: No
  Sender: FDA-Public Use
  Company Number: US-GALDERMA-US19060366

PATIENT
  Age: 57 Year
  Sex: Female

DRUGS (7)
  1. MULTIVITAMIN [Concomitant]
     Active Substance: VITAMINS
     Indication: PRODUCT USED FOR UNKNOWN INDICATION
  2. PROACTIV MD ADAPALENE ACNE TREATMENT [Suspect]
     Active Substance: ADAPALENE
     Indication: PSORIASIS
     Dosage: 0.1%
     Route: 061
     Dates: start: 20190621, end: 20190626
  3. PROACTIV MD DEEP CLEANSING FACE WASH [Concomitant]
     Active Substance: COSMETICS
     Indication: PSORIASIS
     Route: 061
     Dates: start: 20190621, end: 20190626
  4. PROACTIV REDNESS RELIEF SERUM [Concomitant]
     Indication: PSORIASIS
     Route: 061
     Dates: start: 20190621, end: 20190626
  5. PROACTIV GREEN TEA MOISTURIZER [Concomitant]
     Active Substance: COSMETICS
     Indication: PSORIASIS
     Route: 061
     Dates: start: 20190621, end: 20190626
  6. PROACTIV DEEP CLEANSING WASH [Concomitant]
     Active Substance: SALICYLIC ACID
     Indication: PSORIASIS
     Route: 061
     Dates: start: 20190621, end: 20190626
  7. PROACTIV MD DAILY OIL CONTROL SPF 30 [Suspect]
     Active Substance: AVOBENZONE\OCTISALATE\OCTOCRYLENE
     Indication: PSORIASIS
     Route: 061
     Dates: start: 20190621, end: 20190626

REACTIONS (2)
  - Product use in unapproved indication [Recovered/Resolved]
  - Dermatitis [Recovered/Resolved]

NARRATIVE: CASE EVENT DATE: 20190621
